FAERS Safety Report 10108793 (Version 3)
Quarter: 2014Q2

REPORT INFORMATION
  Report Type: Spontaneous
  Country: TR (occurrence: TR)
  Receive Date: 20140425
  Receipt Date: 20140515
  Transmission Date: 20141212
  Serious: Yes (Hospitalization)
  Sender: FDA-Public Use
  Company Number: TR-AMGEN INC.-TURSP2013045278

PATIENT
  Age: 56 Year
  Sex: Female

DRUGS (3)
  1. ENBREL [Suspect]
     Indication: PSORIATIC ARTHROPATHY
     Dosage: 50 MG, QWK
     Route: 058
     Dates: start: 20130321, end: 201305
  2. ENBREL [Suspect]
     Dosage: 50 MG, QWK
     Route: 058
  3. NAPROSYN                           /00256201/ [Concomitant]
     Indication: PSORIATIC ARTHROPATHY
     Dosage: UNK, AS NEEDED
     Route: 048
     Dates: start: 2011, end: 201305

REACTIONS (5)
  - Dysphagia [Recovering/Resolving]
  - Hepatic enzyme increased [Recovered/Resolved]
  - Pain [Recovered/Resolved]
  - Musculoskeletal stiffness [Unknown]
  - Mobility decreased [Recovered/Resolved]
